FAERS Safety Report 7237272-4 (Version None)
Quarter: 2011Q1

REPORT INFORMATION
  Report Type: 
  Country: None (occurrence: None)
  Receive Date: 20110112
  Receipt Date: 20101228
  Transmission Date: 20110831
  Serious: Yes (Hospitalization, Other)
  Sender: FDA-Public Use
  Company Number: 1000018056

PATIENT
  Age: 31 Year
  Sex: Female

DRUGS (4)
  1. LEVOTHYROXINE SODIUM [Suspect]
     Dosage: 150 MCG (150 MCG,1 IN 1 D),ORAL
     Route: 048
     Dates: start: 20090101
  2. MILNACIPRAN (MILNACIPRAN HYDROCHLORIDE) (CAPSULES) [Suspect]
     Indication: DEPRESSION
     Dosage: 4 DOSAGE FORMS,ORAL
     Route: 048
     Dates: start: 20090101
  3. MEPRONIZINE (ACEPROMETAZINE MALEATE, MEPROBAMATE) (TABLETS) [Suspect]
     Dosage: ORAL
     Route: 048
     Dates: start: 20090101
  4. LYSANXIA (PRAZEPAM) (TABLETS) [Suspect]
     Dosage: ORAL
     Route: 048
     Dates: start: 20090101

REACTIONS (2)
  - ABORTION SPONTANEOUS [None]
  - DRUG EXPOSURE DURING PREGNANCY [None]
